FAERS Safety Report 9111045 (Version 2)
Quarter: 2013Q2

REPORT INFORMATION
  Report Type: Spontaneous
  Country: US (occurrence: US)
  Receive Date: 20130219
  Receipt Date: 20130521
  Transmission Date: 20140414
  Serious: Yes (Hospitalization)
  Sender: FDA-Public Use
  Company Number: US-BRISTOL-MYERS SQUIBB COMPANY-16917239

PATIENT
  Age: 51 Year
  Sex: Female
  Weight: 65.76 kg

DRUGS (1)
  1. ORENCIA [Suspect]
     Indication: RHEUMATOID ARTHRITIS
     Dosage: INF:3?LAST INF 7DEC12, APR13
     Route: 042
     Dates: start: 201206

REACTIONS (4)
  - Thrombosis [Unknown]
  - Pain [Recovering/Resolving]
  - Adverse event [Unknown]
  - Laboratory test abnormal [Unknown]
